FAERS Safety Report 8511163-0 (Version None)
Quarter: 2012Q2

REPORT INFORMATION
  Report Type: 
  Country: None (occurrence: None)
  Receive Date: 20120629
  Receipt Date: 20120625
  Transmission Date: 20120825
  Serious: Yes (Life-Threatening, Other)
  Sender: FDA-Public Use
  Company Number: 2012SP032179

PATIENT
  Age: 48 Year
  Sex: Female
  Weight: 68 kg

DRUGS (6)
  1. GLYBURIDE [Concomitant]
  2. IMPLANON [Suspect]
     Dosage: 1 DF
     Dates: start: 20080507
  3. ASPIRIN [Concomitant]
  4. IMPLANON [Suspect]
     Indication: PRODUCT USED FOR UNKNOWN INDICATION
     Dosage: 1 DF
     Dates: start: 20020502, end: 20050517
  5. IMPLANON [Suspect]
     Dosage: 1 DF
     Dates: start: 20050517, end: 20080407
  6. HUMALOG MIX 50 [Concomitant]

REACTIONS (3)
  - DEVICE DIFFICULT TO USE [None]
  - BREAST CANCER IN SITU [None]
  - FIBROSIS [None]
